FAERS Safety Report 6239687-X (Version None)
Quarter: 2009Q2

REPORT INFORMATION
  Report Type: 
  Country: None (occurrence: None)
  Receive Date: 20090619
  Receipt Date: 20090615
  Transmission Date: 20091009
  Serious: Yes (Other)
  Sender: FDA-Public Use
  Company Number: GXKR2009DE06856

PATIENT
  Age: 40 Year
  Sex: Female

DRUGS (1)
  1. PARACETAMOL HEXAL (NGX) (PARACETAMOL) TABLET, 500MG [Suspect]
     Dosage: 500 MG, ORAL
     Route: 048

REACTIONS (1)
  - INTENTIONAL DRUG MISUSE [None]
